FAERS Safety Report 16145311 (Version 2)
Quarter: 2019Q2

REPORT INFORMATION
  Report Type: Spontaneous
  Country: US (occurrence: US)
  Receive Date: 20190402
  Receipt Date: 20190522
  Transmission Date: 20190711
  Serious: No
  Sender: FDA-Public Use
  Company Number: US-ALK-ABELLO A/S-2019AA000261

PATIENT

DRUGS (6)
  1. DAE BULK 729 [Suspect]
     Active Substance: EDIBLE ROCK CRAB
     Indication: PRODUCT USED FOR UNKNOWN INDICATION
     Dosage: UNK
     Dates: start: 20180817
  2. DAE BULK 729 [Suspect]
     Active Substance: EDIBLE ROCK CRAB
     Dosage: UNK
     Dates: start: 20181015
  3. DAE BULK 1458 [Suspect]
     Active Substance: CRANGON SHRIMP
     Dosage: UNK
     Dates: start: 20181015
  4. DAE BULK 1266 [Suspect]
     Active Substance: LOBSTER, UNSPECIFIED
     Indication: PRODUCT USED FOR UNKNOWN INDICATION
     Dosage: UNK
     Dates: start: 20180817
  5. DAE BULK 1266 [Suspect]
     Active Substance: LOBSTER, UNSPECIFIED
     Dosage: UNK
     Dates: start: 20181015
  6. DAE BULK 1458 [Suspect]
     Active Substance: CRANGON SHRIMP
     Indication: PRODUCT USED FOR UNKNOWN INDICATION
     Dosage: UNK
     Dates: start: 20180817

REACTIONS (2)
  - False negative investigation result [Unknown]
  - False negative investigation result [Unknown]

NARRATIVE: CASE EVENT DATE: 20180817
